FAERS Safety Report 7125507-8 (Version None)
Quarter: 2010Q4

REPORT INFORMATION
  Report Type: 
  Country: None (occurrence: None)
  Receive Date: 20101129
  Receipt Date: 20101119
  Transmission Date: 20110411
  Serious: Yes (Hospitalization)
  Sender: FDA-Public Use
  Company Number: FR-SANOFI-AVENTIS-2010SA070202

PATIENT
  Age: 78 Year
  Sex: Male

DRUGS (12)
  1. AMAREL [Suspect]
     Route: 048
     Dates: end: 20101023
  2. AMAREL [Suspect]
     Route: 048
     Dates: start: 20101024
  3. STAGID [Suspect]
     Route: 048
  4. TERALITHE [Concomitant]
     Route: 048
  5. ANAFRANIL [Concomitant]
     Route: 048
  6. SELEGILINE HCL [Concomitant]
     Route: 048
  7. NIFEDIPINE [Concomitant]
  8. BISOPROLOL FUMARATE [Concomitant]
  9. FENOFIBRATE [Concomitant]
  10. KARDEGIC [Concomitant]
     Route: 048
  11. SINEMET [Concomitant]
  12. NOOTROPYL [Concomitant]
     Route: 048

REACTIONS (2)
  - CONFUSIONAL STATE [None]
  - HYPOGLYCAEMIA [None]
